FAERS Safety Report 19740594 (Version 1)
Quarter: 2021Q3

REPORT INFORMATION
  Report Type: Spontaneous
  Country: US (occurrence: US)
  Receive Date: 20210824
  Receipt Date: 20210824
  Transmission Date: 20211014
  Serious: Yes (Death, Life-Threatening, Hospitalization, Other)
  Sender: FDA-Public Use
  Company Number: US-SUN PHARMACEUTICAL INDUSTRIES LTD-2021R1-308957

PATIENT
  Age: 41 Year
  Sex: Female

DRUGS (1)
  1. ACETAMINOPHEN. [Suspect]
     Active Substance: ACETAMINOPHEN
     Indication: PRODUCT USED FOR UNKNOWN INDICATION
     Dosage: 500 TABLETS, UNK
     Route: 048

REACTIONS (14)
  - Injury [Unknown]
  - Multiple organ dysfunction syndrome [Fatal]
  - Splenic injury [Unknown]
  - Overdose [Unknown]
  - Fracture [Unknown]
  - Arterial injury [Unknown]
  - Haemorrhage [Unknown]
  - Analgesic drug level increased [Unknown]
  - Metabolic acidosis [Unknown]
  - Coma scale abnormal [Unknown]
  - Spinal fracture [Unknown]
  - Transaminases increased [Unknown]
  - Suicide attempt [Unknown]
  - Gastrointestinal injury [Unknown]
